FAERS Safety Report 18810464 (Version 1)
Quarter: 2021Q1

REPORT INFORMATION
  Report Type: Spontaneous
  Country: US (occurrence: US)
  Receive Date: 20210129
  Receipt Date: 20210129
  Transmission Date: 20210419
  Serious: No
  Sender: FDA-Public Use
  Company Number: US-PFIZER INC-2021083387

PATIENT
  Age: 59 Year
  Sex: Female
  Weight: 67.13 kg

DRUGS (2)
  1. KEYTRUDA [Suspect]
     Active Substance: PEMBROLIZUMAB
     Route: 042
  2. INLYTA [Suspect]
     Active Substance: AXITINIB
     Indication: RENAL CANCER
     Dosage: 5 MG, 2X/DAY (TABLETS EVERY 12 HOURS BY MOUTH)
     Route: 048
     Dates: start: 2020

REACTIONS (9)
  - Pain in extremity [Not Recovered/Not Resolved]
  - Glossodynia [Unknown]
  - Stomatitis [Unknown]
  - Nausea [Recovering/Resolving]
  - Vomiting [Unknown]
  - Impaired healing [Unknown]
  - Skin exfoliation [Not Recovered/Not Resolved]
  - Rash [Recovered/Resolved]
  - Decreased appetite [Unknown]

NARRATIVE: CASE EVENT DATE: 2020
